FAERS Safety Report 21363688 (Version 2)
Quarter: 2022Q4

REPORT INFORMATION
  Report Type: Report from Study
  Country: JP (occurrence: JP)
  Receive Date: 20220922
  Receipt Date: 20221024
  Transmission Date: 20230112
  Serious: Yes (Hospitalization)
  Sender: FDA-Public Use
  Company Number: JP-MYLANLABS-2022M1095354

PATIENT
  Age: 85 Year
  Sex: Female

DRUGS (3)
  1. ACETAMINOPHEN [Suspect]
     Active Substance: ACETAMINOPHEN
     Indication: Influenza
     Route: 065
  2. BALOXAVIR MARBOXIL [Suspect]
     Active Substance: BALOXAVIR MARBOXIL
     Indication: Influenza
     Route: 065
  3. PERAMIVIR [Suspect]
     Active Substance: PERAMIVIR
     Indication: Influenza
     Route: 065

REACTIONS (3)
  - Haemorrhage [Unknown]
  - Melaena [Unknown]
  - Off label use [Unknown]
